FAERS Safety Report 5603327-0 (Version None)
Quarter: 2008Q1

REPORT INFORMATION
  Report Type: 
  Country: None (occurrence: None)
  Receive Date: 20080122
  Receipt Date: 20080108
  Transmission Date: 20080703
  Serious: Yes (Death)
  Sender: FDA-Public Use
  Company Number: 2007AL005119

PATIENT
  Age: 23 Year
  Sex: Male
  Weight: 106 kg

DRUGS (7)
  1. TEMAZEPAM [Suspect]
     Dosage: 20 MG;
     Dates: start: 20051230, end: 20051230
  2. FENTANYL TRANSDERMAL SYSTEM [Suspect]
     Indication: CROHN'S DISEASE
     Dosage: 50 MCG; ; TDER
     Route: 062
     Dates: start: 20051225, end: 20051230
  3. PIRITON [Concomitant]
  4. CYCLIZINE [Concomitant]
  5. DIAZEPAM [Concomitant]
  6. ORAMORPH SR [Concomitant]
  7. PREDFOAM [Concomitant]

REACTIONS (15)
  - ANXIETY [None]
  - CONDITION AGGRAVATED [None]
  - CROHN'S DISEASE [None]
  - DEPRESSED LEVEL OF CONSCIOUSNESS [None]
  - DIZZINESS [None]
  - DRUG INEFFECTIVE [None]
  - DRUG TOXICITY [None]
  - FATIGUE [None]
  - GRAM STAIN POSITIVE [None]
  - HYPERSENSITIVITY [None]
  - MENINGITIS [None]
  - MUSCULOSKELETAL STIFFNESS [None]
  - PNEUMONIA [None]
  - PRURITUS GENERALISED [None]
  - SOMNOLENCE [None]
